FAERS Safety Report 7452272-7 (Version None)
Quarter: 2011Q2

REPORT INFORMATION
  Report Type: 
  Country: None (occurrence: None)
  Receive Date: 20110425
  Receipt Date: 20110413
  Transmission Date: 20111010
  Serious: Yes (Hospitalization, Other)
  Sender: FDA-Public Use
  Company Number: WAES 1011USA00380

PATIENT
  Age: 64 Year
  Sex: Female

DRUGS (7)
  1. MOGADON [Concomitant]
  2. TEMAZ [Concomitant]
  3. LOMOTIL [Concomitant]
  4. CAP VORINOSTAT 300 MG/DAILY [Suspect]
     Indication: MULTIPLE MYELOMA
     Dosage: 300 MG/DAILY PO ; 300 MG/DAILY PO
     Route: 048
     Dates: start: 20100803, end: 20101101
  5. CAP VORINOSTAT 300 MG/DAILY [Suspect]
     Indication: MULTIPLE MYELOMA
     Dosage: 300 MG/DAILY PO ; 300 MG/DAILY PO
     Route: 048
     Dates: start: 20101108, end: 20101122
  6. MAGMIN [Concomitant]
  7. BORTEZOMIB [Suspect]
     Indication: MULTIPLE MYELOMA
     Dosage: 1.8 MG/M[2] /DAILY IV
     Route: 042
     Dates: start: 20100803, end: 20101201

REACTIONS (9)
  - ATELECTASIS [None]
  - PNEUMOCYSTIS JIROVECI PNEUMONIA [None]
  - THROMBOCYTOPENIA [None]
  - NAUSEA [None]
  - NEUROPATHY PERIPHERAL [None]
  - ACCIDENTAL OVERDOSE [None]
  - NEOPLASM MALIGNANT [None]
  - ANAEMIA [None]
  - MULTIPLE MYELOMA [None]
